FAERS Safety Report 21994725 (Version 1)
Quarter: 2023Q1

REPORT INFORMATION
  Report Type: Spontaneous
  Country: US (occurrence: None)
  Receive Date: 20230214
  Receipt Date: 20230214
  Transmission Date: 20230418
  Serious: No
  Sender: FDA-Public Use
  Company Number: None

PATIENT
  Age: 69 Year
  Sex: Female
  Weight: 63 kg

DRUGS (21)
  1. PAXLOVID [Suspect]
     Active Substance: NIRMATRELVIR\RITONAVIR
     Indication: SARS-CoV-2 test positive
     Dosage: FREQUENCY : TWICE A DAY;?
     Route: 048
     Dates: start: 20230211, end: 20230213
  2. METFORMIN [Concomitant]
     Active Substance: METFORMIN HYDROCHLORIDE
  3. PREMARIN [Concomitant]
     Active Substance: ESTROGENS, CONJUGATED
  4. CLONAZEPAM [Concomitant]
     Active Substance: CLONAZEPAM
  5. ALENDRONATE [Concomitant]
     Active Substance: ALENDRONATE SODIUM
  6. LOSARTAN [Concomitant]
     Active Substance: LOSARTAN
  7. OMEPRAZOLE [Concomitant]
     Active Substance: OMEPRAZOLE
  8. ALVESCO [Concomitant]
     Active Substance: CICLESONIDE
  9. Budesonide neb suspension [Concomitant]
  10. VITAMINS [Concomitant]
     Active Substance: VITAMINS
  11. B Complex [Concomitant]
  12. FIBER [Concomitant]
  13. VITAMIN D [Concomitant]
     Active Substance: VITAMIN D NOS
  14. VITAMIN C [Concomitant]
     Active Substance: ASCORBIC ACID
  15. IRON [Concomitant]
     Active Substance: IRON
  16. PROBIOTICS NOS [Concomitant]
     Active Substance: PROBIOTICS NOS
  17. CRANBERRY [Concomitant]
     Active Substance: CRANBERRY
  18. BIOTIN [Concomitant]
     Active Substance: BIOTIN
  19. CALCIUM [Concomitant]
     Active Substance: CALCIUM
  20. OMEGA 3 [Concomitant]
     Active Substance: CAPSAICIN
  21. COENZYME Q10 [Concomitant]
     Active Substance: DIETARY SUPPLEMENT\UBIDECARENONE

REACTIONS (4)
  - Chest discomfort [None]
  - Abdominal pain [None]
  - Chromaturia [None]
  - Headache [None]

NARRATIVE: CASE EVENT DATE: 20230211
